FAERS Safety Report 24267706 (Version 3)
Quarter: 2024Q4

REPORT INFORMATION
  Report Type: Spontaneous
  Country: US (occurrence: US)
  Receive Date: 20240830
  Receipt Date: 20241004
  Transmission Date: 20250115
  Serious: No
  Sender: ABBVIE
  Company Number: US-ABBVIE-5891839

PATIENT
  Age: 47 Year
  Weight: 65 kg

DRUGS (2)
  1. SKYRIZI [Suspect]
     Active Substance: RISANKIZUMAB-RZAA
     Indication: Psoriasis
     Dosage: FORM STRENGTH: 150 MILLIGRAM/MILLILITERS
     Route: 058
     Dates: start: 20240729
  2. SKYRIZI [Suspect]
     Active Substance: RISANKIZUMAB-RZAA
     Indication: Psoriasis

REACTIONS (1)
  - Lymphadenopathy [Recovered/Resolved]

NARRATIVE: CASE EVENT DATE: 20240729
